FAERS Safety Report 22061033 (Version 2)
Quarter: 2023Q2

REPORT INFORMATION
  Report Type: Spontaneous
  Country: JP (occurrence: JP)
  Receive Date: 20230303
  Receipt Date: 20230418
  Transmission Date: 20230721
  Serious: Yes (Other)
  Sender: FDA-Public Use
  Company Number: JP-BAYER-2023A027437

PATIENT
  Sex: Male

DRUGS (1)
  1. VITRAKVI [Suspect]
     Active Substance: LAROTRECTINIB
     Indication: Prostate cancer
     Dosage: 100 MG, BID
     Dates: start: 20221215, end: 20230201

REACTIONS (5)
  - Prostate cancer [Not Recovered/Not Resolved]
  - Prostatic specific antigen increased [Not Recovered/Not Resolved]
  - Haematuria [None]
  - Malaise [None]
  - Drug ineffective [None]

NARRATIVE: CASE EVENT DATE: 20230201
